FAERS Safety Report 6310778-8 (Version None)
Quarter: 2009Q3

REPORT INFORMATION
  Report Type: 
  Country: None (occurrence: None)
  Receive Date: 20090812
  Receipt Date: 20090805
  Transmission Date: 20100115
  Serious: Yes (Other)
  Sender: FDA-Public Use
  Company Number: 2009006039

PATIENT
  Sex: Male

DRUGS (2)
  1. TREANDA [Suspect]
     Indication: B-CELL LYMPHOMA
     Dosage: (80 MG/M2),INTRAVENOUS
     Route: 042
     Dates: start: 20090202
  2. ALLOPURINOL [Concomitant]

REACTIONS (3)
  - ACUTE FEBRILE NEUTROPHILIC DERMATOSIS [None]
  - EMPYEMA [None]
  - STEVENS-JOHNSON SYNDROME [None]
